FAERS Safety Report 20795633 (Version 2)
Quarter: 2022Q3

REPORT INFORMATION
  Report Type: Spontaneous
  Country: US (occurrence: US)
  Receive Date: 20220506
  Receipt Date: 20220707
  Transmission Date: 20221026
  Serious: Yes (Other)
  Sender: FDA-Public Use
  Company Number: US-PFIZER INC-202101104202

PATIENT
  Sex: Male

DRUGS (1)
  1. EFFEXOR XR [Suspect]
     Active Substance: VENLAFAXINE HYDROCHLORIDE
     Dosage: UNK
     Dates: end: 2020

REACTIONS (9)
  - Shock [Unknown]
  - Withdrawal syndrome [Unknown]
  - Mood swings [Unknown]
  - Fatigue [Not Recovered/Not Resolved]
  - Hyperhidrosis [Not Recovered/Not Resolved]
  - Nightmare [Unknown]
  - Electric shock sensation [Unknown]
  - Hyperhidrosis [Unknown]
  - Ectropion of cervix [Unknown]

NARRATIVE: CASE EVENT DATE: 20210101
